FAERS Safety Report 6016648-7 (Version None)
Quarter: 2008Q4

REPORT INFORMATION
  Report Type: 
  Country: None (occurrence: None)
  Receive Date: 20081222
  Receipt Date: 20081210
  Transmission Date: 20090506
  Serious: Yes (Other)
  Sender: FDA-Public Use
  Company Number: BR-PFIZER INC-2008153072

PATIENT

DRUGS (4)
  1. FRONTAL [Suspect]
     Dosage: INTERVAL: EVERY DAY; TDD:2 MG
     Route: 048
     Dates: start: 19880101
  2. ENALAPRIL MALEATE [Concomitant]
     Dosage: UNK
     Route: 065
  3. ATORVASTATIN CALCIUM [Concomitant]
     Dosage: UNK
     Route: 065
  4. TEBONIN [Concomitant]
     Dosage: UNK
     Route: 065

REACTIONS (6)
  - DIZZINESS [None]
  - FEELING ABNORMAL [None]
  - LABYRINTHITIS [None]
  - NERVOUSNESS [None]
  - OBSTRUCTION [None]
  - TREMOR [None]
